FAERS Safety Report 12573153 (Version 2)
Quarter: 2016Q3

REPORT INFORMATION
  Report Type: Spontaneous
  Country: US (occurrence: US)
  Receive Date: 20160720
  Receipt Date: 20160929
  Transmission Date: 20161109
  Serious: No
  Sender: FDA-Public Use
  Company Number: US-LEO PHARMA-243110

PATIENT
  Age: 59 Year
  Sex: Male

DRUGS (1)
  1. PICATO [Suspect]
     Active Substance: INGENOL MEBUTATE
     Indication: ACTINIC KERATOSIS
     Route: 061

REACTIONS (6)
  - Application site pain [Recovered/Resolved]
  - Application site swelling [Recovered/Resolved]
  - Actinic keratosis [Not Recovered/Not Resolved]
  - Incorrect dose administered [Unknown]
  - Drug administered at inappropriate site [Unknown]
  - Application site vesicles [Recovered/Resolved]
